FAERS Safety Report 13340431 (Version 6)
Quarter: 2022Q4

REPORT INFORMATION
  Report Type: Spontaneous
  Country: US (occurrence: US)
  Receive Date: 20170316
  Receipt Date: 20221209
  Transmission Date: 20230113
  Serious: No
  Sender: FDA-Public Use
  Company Number: US-PFIZER INC-2017106540

PATIENT
  Age: 65 Year
  Sex: Female
  Weight: 51.701 kg

DRUGS (8)
  1. XELJANZ XR [Suspect]
     Active Substance: TOFACITINIB CITRATE
     Indication: Rheumatoid arthritis
     Dosage: 11 MG, 1X/DAY
     Route: 048
  2. FOLIC ACID [Concomitant]
     Active Substance: FOLIC ACID
     Indication: Inflammation
     Dosage: 1 MG, DAILY
     Route: 048
  3. SIMVASTATIN [Concomitant]
     Active Substance: SIMVASTATIN
     Indication: Blood cholesterol abnormal
     Dosage: 20 MG, 1X/DAY ( AT NIGHT)
     Route: 048
  4. METHOTREXATE [Concomitant]
     Active Substance: METHOTREXATE
     Dosage: 2.5 MG, WEEKLY
     Route: 048
  5. VITAMIN D3 [Concomitant]
     Active Substance: CHOLECALCIFEROL
     Dosage: 500 IU, DAILY
     Route: 048
  6. CITALOPRAM [Concomitant]
     Active Substance: CITALOPRAM HYDROBROMIDE
     Indication: Depression
     Dosage: 20 MG, 1X/DAY (AT NIGHT)
     Route: 048
  7. VITAMINS [Concomitant]
     Active Substance: VITAMINS
     Dosage: 1 DF, DAILY
     Route: 048
  8. CALCIUM [Concomitant]
     Active Substance: CALCIUM
     Dosage: 1200 MG, 2X/DAY (600MG 2 TABLETS IN THE MORNING AND 2 TABLETS AT NIGHT)
     Route: 048

REACTIONS (9)
  - Fungal infection [Unknown]
  - Condition aggravated [Unknown]
  - Therapeutic product effect incomplete [Recovering/Resolving]
  - Fatigue [Unknown]
  - Asthenia [Unknown]
  - Weight decreased [Unknown]
  - Decreased appetite [Unknown]
  - Memory impairment [Unknown]
  - Body height decreased [Unknown]
